FAERS Safety Report 15636938 (Version 2)
Quarter: 2019Q3

REPORT INFORMATION
  Report Type: Spontaneous
  Country: US (occurrence: US)
  Receive Date: 20181120
  Receipt Date: 20190830
  Transmission Date: 20191004
  Serious: Yes (Other)
  Sender: FDA-Public Use
  Company Number: US-SA-2018SA317061

PATIENT
  Age: 66 Year
  Sex: Female

DRUGS (1)
  1. AUBAGIO [Suspect]
     Active Substance: TERIFLUNOMIDE
     Indication: MULTIPLE SCLEROSIS
     Dosage: 14 MG, QD
     Route: 048
     Dates: start: 20180202

REACTIONS (8)
  - Dropped head syndrome [Unknown]
  - Multiple sclerosis [Unknown]
  - Dysphonia [Unknown]
  - Speech disorder [Unknown]
  - Fall [Unknown]
  - Balance disorder [Unknown]
  - Muscle spasms [Unknown]
  - Muscle spasticity [Unknown]
